FAERS Safety Report 14960969 (Version 1)
Quarter: 2018Q2

REPORT INFORMATION
  Report Type: Spontaneous
  Country: JP (occurrence: JP)
  Receive Date: 20180531
  Receipt Date: 20180531
  Transmission Date: 20180711
  Serious: Yes (Hospitalization)
  Sender: FDA-Public Use
  Company Number: JP-009507513-1805JPN012438

PATIENT
  Age: 38 Year
  Sex: Male
  Weight: 59 kg

DRUGS (29)
  1. DELTYBA [Suspect]
     Active Substance: DELAMANID
     Indication: PULMONARY TUBERCULOSIS
     Dosage: 200 MG, DAILY DOSE
     Route: 048
     Dates: start: 20161121
  2. CISPLATIN. [Suspect]
     Active Substance: CISPLATIN
     Dosage: 32 MG, DAILY DOSE
     Route: 041
     Dates: start: 20170511, end: 20170515
  3. PYRAMIDE [Concomitant]
     Active Substance: PYRAZINAMIDE
     Indication: TUBERCULOSIS
     Dosage: UNK
     Dates: start: 20160922
  4. OLOPATADINE HYDROCHLORIDE. [Concomitant]
     Active Substance: OLOPATADINE HYDROCHLORIDE
     Indication: PRODUCT USED FOR UNKNOWN INDICATION
     Dosage: UNK
     Dates: start: 20161017, end: 20170415
  5. DEXART [Concomitant]
     Active Substance: DEXAMETHASONE SODIUM PHOSPHATE
     Indication: PRODUCT USED FOR UNKNOWN INDICATION
     Dosage: UNK
     Dates: start: 20170327, end: 20171112
  6. NEUTROGIN [Concomitant]
     Active Substance: LENOGRASTIM
     Indication: PRODUCT USED FOR UNKNOWN INDICATION
     Dosage: UNK
     Dates: start: 20170407, end: 20170509
  7. EMEND [Suspect]
     Active Substance: APREPITANT
     Indication: PROPHYLAXIS OF NAUSEA AND VOMITING
     Dosage: 125 MG, DAILY DOSE
     Route: 048
     Dates: start: 20170327, end: 20170327
  8. ETOPOSIDE. [Suspect]
     Active Substance: ETOPOSIDE
     Dosage: 160 MG, DAILY DOSE
     Route: 041
     Dates: start: 20170418, end: 20170422
  9. NIPPAS CALCIUM [Concomitant]
     Indication: TUBERCULOSIS
     Dosage: UNK
     Dates: start: 20161109
  10. ALOXI [Concomitant]
     Active Substance: PALONOSETRON HYDROCHLORIDE
     Indication: PRODUCT USED FOR UNKNOWN INDICATION
     Dosage: UNK
     Dates: start: 20170327, end: 20170327
  11. EMEND [Suspect]
     Active Substance: APREPITANT
     Dosage: 125 MG, DAILY DOSE
     Route: 048
     Dates: start: 20171109, end: 20171109
  12. CISPLATIN. [Suspect]
     Active Substance: CISPLATIN
     Indication: PRODUCT USED FOR UNKNOWN INDICATION
     Dosage: 32 MG, DAILY DOSE
     Route: 041
     Dates: start: 20170327, end: 20170331
  13. TUBERMIN [Concomitant]
     Active Substance: ETHIONAMIDE
     Indication: TUBERCULOSIS
     Dosage: UNK
     Dates: start: 20161109
  14. FUROSEMIDE. [Concomitant]
     Active Substance: FUROSEMIDE
     Dosage: UNK
     Dates: start: 20170419, end: 20170423
  15. EMEND [Suspect]
     Active Substance: APREPITANT
     Dosage: 80 MG DAILY DOSE
     Route: 048
     Dates: start: 20170328, end: 20170331
  16. EMEND [Suspect]
     Active Substance: APREPITANT
     Dosage: 80 MG, DAILY DOSE
     Route: 048
     Dates: start: 20171019, end: 20171021
  17. CISPLATIN. [Suspect]
     Active Substance: CISPLATIN
     Dosage: 30 MG, DAILY DOSE
     Route: 041
     Dates: start: 20171018, end: 20171021
  18. LEVOFLOXACIN. [Concomitant]
     Active Substance: LEVOFLOXACIN
     Indication: TUBERCULOSIS
     Dosage: UNK
     Dates: start: 20161029
  19. KANAMYCIN SULFATE [Concomitant]
     Active Substance: KANAMYCIN SULFATE
     Indication: TUBERCULOSIS
     Dosage: UNK
     Dates: start: 20161119, end: 20170417
  20. FEBURIC [Concomitant]
     Active Substance: FEBUXOSTAT
     Indication: PRODUCT USED FOR UNKNOWN INDICATION
     Dosage: UNK
     Dates: start: 20170325
  21. EMEND [Suspect]
     Active Substance: APREPITANT
     Dosage: 80 MG, DAILY DOSE
     Route: 048
     Dates: start: 20171110, end: 20171112
  22. CISPLATIN. [Suspect]
     Active Substance: CISPLATIN
     Dosage: 30 MG, DAILY DOSE
     Route: 041
     Dates: start: 20171109, end: 20171112
  23. ETOPOSIDE. [Suspect]
     Active Substance: ETOPOSIDE
     Indication: PRODUCT USED FOR UNKNOWN INDICATION
     Dosage: 160 MG, DAILY DOSE
     Route: 041
     Dates: start: 20170327, end: 20170331
  24. MYCOBUTIN [Concomitant]
     Active Substance: RIFABUTIN
     Indication: TUBERCULOSIS
     Dosage: UNK
     Dates: start: 20161119
  25. EMEND [Suspect]
     Active Substance: APREPITANT
     Dosage: 80 MG, DAILY DOSE
     Route: 048
     Dates: start: 20170512, end: 20170515
  26. IFOMIDE [Suspect]
     Active Substance: IFOSFAMIDE
     Indication: PRODUCT USED FOR UNKNOWN INDICATION
     Dosage: UNK
     Route: 065
  27. EMEND [Suspect]
     Active Substance: APREPITANT
     Dosage: 80 MG, DAILY DOSE
     Route: 048
     Dates: start: 20170418, end: 20170422
  28. CISPLATIN. [Suspect]
     Active Substance: CISPLATIN
     Dosage: 32 MG, DAILY DOSE
     Route: 041
     Dates: start: 20170418, end: 20170422
  29. POLAPREZINC [Concomitant]
     Active Substance: POLAPREZINC
     Indication: PRODUCT USED FOR UNKNOWN INDICATION
     Dosage: UNK
     Dates: start: 20170402

REACTIONS (7)
  - Blood lactate dehydrogenase increased [Recovered/Resolved]
  - Thrombocytopenia [Unknown]
  - Red blood cell count decreased [Not Recovered/Not Resolved]
  - White blood cell count decreased [Not Recovered/Not Resolved]
  - Neutropenia [Unknown]
  - Haemoglobin decreased [Recovered/Resolved]
  - Blood urea increased [Unknown]

NARRATIVE: CASE EVENT DATE: 20170424
